FAERS Safety Report 8332025-8 (Version None)
Quarter: 2012Q2

REPORT INFORMATION
  Report Type: 
  Country: None (occurrence: None)
  Receive Date: 20120502
  Receipt Date: 20120426
  Transmission Date: 20120825
  Serious: Yes (Other)
  Sender: FDA-Public Use
  Company Number: DE-AMGEN-DEUSP2011042296

PATIENT
  Age: 83 Year
  Sex: Female
  Weight: 58 kg

DRUGS (2)
  1. PROLIA [Suspect]
     Indication: OSTEOPOROSIS
     Dosage: UNK UNK, ONE TIME DOSE
     Route: 058
     Dates: start: 20111114, end: 20111114
  2. PROLIA [Suspect]

REACTIONS (4)
  - PRURITUS [None]
  - NAUSEA [None]
  - BONE PAIN [None]
  - PYREXIA [None]
